FAERS Safety Report 6893218-X (Version None)
Quarter: 2010Q3

REPORT INFORMATION
  Report Type: 
  Country: None (occurrence: None)
  Receive Date: 20100731
  Receipt Date: 20090629
  Transmission Date: 20110219
  Serious: Yes (Other)
  Sender: FDA-Public Use
  Company Number: US-PFIZER INC-2009195871

PATIENT
  Sex: Female
  Weight: 145.6 kg

DRUGS (13)
  1. NEURONTIN [Suspect]
     Indication: POST HERPETIC NEURALGIA
     Dosage: 100 MG, 3X/DAY
  2. LYRICA [Suspect]
     Indication: POST HERPETIC NEURALGIA
     Dosage: 75 MG, 2X/DAY
  3. LIPITOR [Suspect]
  4. SEROQUEL [Suspect]
  5. NABUMETONE [Suspect]
     Indication: ARTHRITIS
  6. OXYBUTYNIN [Concomitant]
     Dosage: UNK
  7. REMERON [Concomitant]
     Dosage: UNK
  8. GLIPIZIDE [Concomitant]
     Dosage: UNK
  9. EFFEXOR [Concomitant]
     Dosage: UNK
  10. METOPROLOL [Concomitant]
     Dosage: UNK
  11. VALSARTAN [Concomitant]
     Dosage: UNK
  12. MIRAPEX [Concomitant]
     Dosage: UNK
  13. PANTOPRAZOLE [Concomitant]
     Dosage: UNK

REACTIONS (6)
  - BLOOD ALKALINE PHOSPHATASE INCREASED [None]
  - BLOOD CREATININE INCREASED [None]
  - BLOOD UREA INCREASED [None]
  - LOGORRHOEA [None]
  - MEMORY IMPAIRMENT [None]
  - OEDEMA PERIPHERAL [None]
